FAERS Safety Report 9089982 (Version 2)
Quarter: 2013Q3

REPORT INFORMATION
  Report Type: Report from Study
  Country: US (occurrence: US)
  Receive Date: 20130201
  Receipt Date: 20130809
  Transmission Date: 20140515
  Serious: Yes (Other)
  Sender: FDA-Public Use
  Company Number: US-US-EMD SERONO, INC.-7189993

PATIENT
  Sex: Male
  Weight: 68 kg

DRUGS (1)
  1. REBIF [Suspect]
     Indication: MULTIPLE SCLEROSIS
     Route: 058
     Dates: start: 20090107

REACTIONS (5)
  - Gastrostomy [Unknown]
  - Weight decreased [Unknown]
  - Central nervous system lesion [Unknown]
  - Multiple sclerosis relapse [Unknown]
  - Injection site haemorrhage [Unknown]
